FAERS Safety Report 23936878 (Version 2)
Quarter: 2024Q3

REPORT INFORMATION
  Report Type: Spontaneous
  Country: US (occurrence: US)
  Receive Date: 20240604
  Receipt Date: 20240708
  Transmission Date: 20241016
  Serious: No
  Sender: ALKERMES
  Company Number: US-ALKERMES INC.-ALK-2024-001428

PATIENT
  Age: 38 Year
  Sex: Male
  Weight: 63.492 kg

DRUGS (9)
  1. ARISTADA [Suspect]
     Active Substance: ARIPIPRAZOLE LAUROXIL
     Indication: Affective disorder
     Dosage: 882 MILLIGRAM, QMO
     Route: 030
     Dates: start: 20240528
  2. TRAZODONE [Concomitant]
     Active Substance: TRAZODONE HYDROCHLORIDE
     Indication: Affective disorder
     Dosage: 50 MILLIGRAM, QHS
     Route: 048
     Dates: start: 20240521
  3. TRAZODONE [Concomitant]
     Active Substance: TRAZODONE HYDROCHLORIDE
     Indication: Sleep disorder
  4. LITHIUM [Concomitant]
     Active Substance: LITHIUM
     Indication: Affective disorder
     Dosage: 500 MILLIGRAM,3TABS, QHS
     Dates: start: 20240521
  5. LITHIUM [Concomitant]
     Active Substance: LITHIUM
     Indication: Sleep disorder
  6. HALOPERIDOL [Concomitant]
     Active Substance: HALOPERIDOL
     Indication: Affective disorder
     Dosage: 20 MILLIGRAM, QHS
     Route: 048
     Dates: start: 20240521
  7. HALOPERIDOL [Concomitant]
     Active Substance: HALOPERIDOL
     Indication: Sleep disorder
  8. BENZTROPINE MESYLATE [Concomitant]
     Active Substance: BENZTROPINE MESYLATE
     Indication: Affective disorder
     Dosage: 1 MILLIGRAM, QHS
     Route: 048
     Dates: start: 20240521
  9. BENZTROPINE MESYLATE [Concomitant]
     Active Substance: BENZTROPINE MESYLATE
     Indication: Sleep disorder

REACTIONS (5)
  - Needle issue [Recovered/Resolved]
  - Product administered at inappropriate site [Recovered/Resolved]
  - Product administration error [Recovered/Resolved]
  - Product physical consistency issue [Recovered/Resolved]
  - Off label use [Unknown]

NARRATIVE: CASE EVENT DATE: 20240521
